FAERS Safety Report 10954851 (Version 1)
Quarter: 2015Q1

REPORT INFORMATION
  Report Type: Report from Study
  Country: NL (occurrence: NL)
  Receive Date: 20150325
  Receipt Date: 20150325
  Transmission Date: 20150721
  Serious: Yes (Hospitalization)
  Sender: FDA-Public Use
  Company Number: NL-ABBVIE-14P-114-1317835-00

PATIENT
  Age: 64 Year
  Sex: Female
  Weight: 51.2 kg

DRUGS (1)
  1. DUODOPA [Suspect]
     Active Substance: CARBIDOPA\LEVODOPA
     Indication: PARKINSON^S DISEASE
     Dosage: 20/5 MG/ML, CONTINUOUS; MD: 10.5, CD: 3.8, ED: 1.8, ND UNKNOWN
     Route: 065
     Dates: start: 20130510

REACTIONS (2)
  - Abdominal pain upper [Unknown]
  - Stoma site haemorrhage [Not Recovered/Not Resolved]

NARRATIVE: CASE EVENT DATE: 20140327
